FAERS Safety Report 6394310-9 (Version None)
Quarter: 2009Q4

REPORT INFORMATION
  Report Type: 
  Country: None (occurrence: None)
  Receive Date: 20091006
  Receipt Date: 20090924
  Transmission Date: 20100525
  Serious: Yes (Life-Threatening)
  Sender: FDA-Public Use
  Company Number: 1000009152

PATIENT
  Sex: Male

DRUGS (1)
  1. ACAMPROSATE (ACAMPROSATE CALCIUM) [Suspect]

REACTIONS (1)
  - HEPATOTOXICITY [None]
